FAERS Safety Report 4764259-3 (Version None)
Quarter: 2005Q3

REPORT INFORMATION
  Report Type: 
  Country: None (occurrence: None)
  Receive Date: 20050907
  Receipt Date: 20050907
  Transmission Date: 20060218
  Serious: Yes (Hospitalization)
  Sender: FDA-Public Use
  Company Number: None

PATIENT
  Age: 76 Year
  Sex: Male

DRUGS (2)
  1. GLEEVEC [Suspect]
     Indication: PROSTATE CANCER
     Dosage: 400 MG QD PO
     Route: 048
     Dates: start: 20050820, end: 20050902
  2. TAXOTERE [Suspect]
     Indication: PROSTATE CANCER
     Dosage: 60MG/M2 Q 3 WKS IV DRIP
     Route: 041
     Dates: start: 20040826, end: 20050826

REACTIONS (6)
  - DEHYDRATION [None]
  - DRUG TOXICITY [None]
  - GASTROINTESTINAL TOXICITY [None]
  - NAUSEA [None]
  - NEUTROPENIA [None]
  - VOMITING [None]
